FAERS Safety Report 9854872 (Version 1)
Quarter: 2013Q4

REPORT INFORMATION
  Report Type: Spontaneous
  Country: US (occurrence: None)
  Receive Date: 20131226
  Receipt Date: 20131226
  Transmission Date: 20140711
  Serious: Yes (Other)
  Sender: FDA-Public Use
  Company Number: PHEH2012US016504

PATIENT
  Age: 50 Year
  Sex: Male

DRUGS (2)
  1. EXFORGE (VALSARTAN, AMLODIPINE) UNKNOWN [Suspect]
     Dosage: 1 DF (160/5 MG), QD
  2. ASPIRIN (ACETYLSALICYLIC ACID) [Concomitant]

REACTIONS (3)
  - Blood pressure increased [None]
  - Product packaging issue [None]
  - Product colour issue [None]
